FAERS Safety Report 10371434 (Version 1)
Quarter: 2014Q3

REPORT INFORMATION
  Report Type: Spontaneous
  Country: US (occurrence: None)
  Receive Date: 20140807
  Receipt Date: 20140807
  Transmission Date: 20150326
  Serious: Yes (Disabling)
  Sender: FDA-Public Use
  Company Number: None

PATIENT
  Sex: Female
  Weight: 106.6 kg

DRUGS (18)
  1. REGLAN [Suspect]
     Active Substance: METOCLOPRAMIDE HYDROCHLORIDE
  2. LOSARTAN [Concomitant]
     Active Substance: LOSARTAN
  3. SIMVASTATIN. [Concomitant]
     Active Substance: SIMVASTATIN
  4. LEVOTHYROXINE [Concomitant]
     Active Substance: LEVOTHYROXINE
  5. SINGULAIR [Concomitant]
     Active Substance: MONTELUKAST SODIUM
  6. CARVEDILOL. [Concomitant]
     Active Substance: CARVEDILOL
  7. VITAMIN C [Concomitant]
     Active Substance: ASCORBIC ACID
  8. FACID [Concomitant]
  9. FISH OIL [Concomitant]
     Active Substance: FISH OIL
  10. ALLPURINOL [Concomitant]
  11. POTASSIUM [Concomitant]
     Active Substance: POTASSIUM
  12. FUROSEMIDE. [Concomitant]
     Active Substance: FUROSEMIDE
  13. CLONAZEPAM. [Concomitant]
     Active Substance: CLONAZEPAM
  14. VITAMIN D [Concomitant]
     Active Substance: CHOLECALCIFEROL
  15. CLINDAMYCIN [Suspect]
     Active Substance: CLINDAMYCIN\CLINDAMYCIN PHOSPHATE
     Indication: SINUSITIS
     Route: 048
     Dates: start: 20140704, end: 20140708
  16. PROAIR HFA [Suspect]
     Active Substance: ALBUTEROL SULFATE
  17. IRON [Concomitant]
     Active Substance: IRON
  18. CALCIUM [Concomitant]
     Active Substance: CALCIUM

REACTIONS (5)
  - Rash [None]
  - Urticaria [None]
  - Renal failure [None]
  - Pruritus [None]
  - Dyspnoea [None]

NARRATIVE: CASE EVENT DATE: 2008
